FAERS Safety Report 7108319-0 (Version None)
Quarter: 2010Q4

REPORT INFORMATION
  Report Type: 
  Country: None (occurrence: None)
  Receive Date: 20101117
  Receipt Date: 20101112
  Transmission Date: 20110411
  Serious: Yes (Other)
  Sender: FDA-Public Use
  Company Number: JP-ROCHE-721998

PATIENT
  Age: 70 Year
  Sex: Male

DRUGS (2)
  1. XELODA [Suspect]
     Indication: COLON CANCER RECURRENT
     Dosage: DOSAGE IS UNCERTAIN.
     Route: 048
  2. ELPLAT [Concomitant]
     Dosage: FORM: INJECTION, DOSAGE IS UNCERTAIN
     Route: 041

REACTIONS (1)
  - HEPATIC CIRRHOSIS [None]
